FAERS Safety Report 6021142-3 (Version None)
Quarter: 2008Q4

REPORT INFORMATION
  Report Type: 
  Country: None (occurrence: None)
  Receive Date: 20081229
  Receipt Date: 20081222
  Transmission Date: 20090506
  Serious: Yes (Hospitalization)
  Sender: FDA-Public Use
  Company Number: FR-AVENTIS-200816802EU

PATIENT
  Age: 71 Year
  Sex: Female

DRUGS (9)
  1. FLUDEX                             /00340101/ [Suspect]
     Route: 048
     Dates: end: 20080820
  2. NAFTIDROFURYL [Concomitant]
     Dates: end: 20080820
  3. AROMASINE [Concomitant]
  4. TEMERIT [Concomitant]
  5. DIFFU K [Concomitant]
     Dates: end: 20080820
  6. OXYCONTIN [Concomitant]
     Dates: end: 20080820
  7. PANTOPRAZOLE [Concomitant]
  8. FORLAX [Concomitant]
  9. LYRICA [Concomitant]

REACTIONS (2)
  - ARRHYTHMIA [None]
  - RENAL FAILURE [None]
